FAERS Safety Report 12082590 (Version 1)
Quarter: 2016Q1

REPORT INFORMATION
  Report Type: Spontaneous
  Country: US (occurrence: None)
  Receive Date: 20160212
  Receipt Date: 20160212
  Transmission Date: 20160526
  Serious: No
  Sender: FDA-Public Use
  Company Number: None

PATIENT
  Age: 77 Year
  Sex: Male
  Weight: 98.88 kg

DRUGS (22)
  1. ANORO ELLIPTA [Concomitant]
     Active Substance: UMECLIDINIUM BROMIDE\VILANTEROL TRIFENATATE
  2. PIOGLITAZONE-METFORMIN [Concomitant]
  3. PLANT STEROLS [Concomitant]
  4. VITAMIN D3 [Concomitant]
     Active Substance: CHOLECALCIFEROL
  5. COD LIVER OIL [Concomitant]
     Active Substance: COD LIVER OIL
  6. ATORVASTATIN [Concomitant]
     Active Substance: ATORVASTATIN
  7. CARVEDILOL. [Concomitant]
     Active Substance: CARVEDILOL
  8. D-HIST [Concomitant]
  9. ORTHO MOLECULAR METHYL CPG [Concomitant]
  10. NIACIN ER [Concomitant]
     Active Substance: NIACIN
  11. COENZYME Q10 [Concomitant]
     Active Substance: UBIDECARENONE
  12. OPDIVO [Suspect]
     Active Substance: NIVOLUMAB
     Indication: NON-SMALL CELL LUNG CANCER
     Dosage: 3 MG/KG OVER 1 HOUR Q 2 WEEKS INTRAVENOUS
     Route: 042
     Dates: start: 20151031, end: 20160129
  13. GLIMEPIRIDE. [Concomitant]
     Active Substance: GLIMEPIRIDE
  14. KLOR-CON [Concomitant]
     Active Substance: POTASSIUM CHLORIDE
  15. VALSARTAN AND HYDROCHLOROTHIAZIDE [Concomitant]
     Active Substance: HYDROCHLOROTHIAZIDE\VALSARTAN
  16. VITALINE [Concomitant]
  17. K2 [Concomitant]
     Active Substance: JWH-018
  18. ASPIRIN. [Concomitant]
     Active Substance: ASPIRIN
  19. LEVOTHYROXINE. [Concomitant]
     Active Substance: LEVOTHYROXINE
  20. AMLODIPINE BESYLATE. [Concomitant]
     Active Substance: AMLODIPINE BESYLATE
  21. JANUVIA [Concomitant]
     Active Substance: SITAGLIPTIN PHOSPHATE
  22. LORATIDINE [Concomitant]
     Active Substance: LORATADINE

REACTIONS (2)
  - Tubulointerstitial nephritis [None]
  - Acute kidney injury [None]

NARRATIVE: CASE EVENT DATE: 20160129
